FAERS Safety Report 12957943 (Version 1)
Quarter: 2016Q4

REPORT INFORMATION
  Report Type: Spontaneous
  Country: US (occurrence: US)
  Receive Date: 20161118
  Receipt Date: 20161118
  Transmission Date: 20170207
  Serious: No
  Sender: FDA-Public Use
  Company Number: US-AQUA PHARMACEUTICALS-2015AQU000062

PATIENT
  Age: 87 Year
  Sex: Female
  Weight: 59.68 kg

DRUGS (2)
  1. VERDESO [Suspect]
     Active Substance: DESONIDE
     Indication: URTICARIA
     Dosage: UNK, BID
     Route: 061
     Dates: start: 201510
  2. SYNTHROID [Concomitant]
     Active Substance: LEVOTHYROXINE SODIUM
     Dosage: UNK

REACTIONS (1)
  - Cushing^s syndrome [Not Recovered/Not Resolved]

NARRATIVE: CASE EVENT DATE: 2015
